FAERS Safety Report 4462272-7 (Version None)
Quarter: 2004Q3

REPORT INFORMATION
  Report Type: 
  Country: None (occurrence: None)
  Receive Date: 20040929
  Receipt Date: 20040917
  Transmission Date: 20050211
  Serious: Yes (Other)
  Sender: FDA-Public Use
  Company Number: GB-GLAXOSMITHKLINE-B0345920A

PATIENT
  Age: 49 Year
  Sex: Male

DRUGS (1)
  1. ZANTAC 75 [Suspect]
     Indication: STOMACH DISCOMFORT
     Dosage: 150MG TWICE PER DAY
     Route: 048
     Dates: start: 20040904, end: 20040917

REACTIONS (1)
  - ATRIAL FIBRILLATION [None]
